FAERS Safety Report 9118392 (Version 1)
Quarter: 2013Q1

REPORT INFORMATION
  Report Type: Spontaneous
  Country: US (occurrence: None)
  Receive Date: 20130128
  Receipt Date: 20130128
  Transmission Date: 20140127
  Serious: Yes (Hospitalization)
  Sender: FDA-Public Use
  Company Number: 54973 AE #1025

PATIENT
  Age: 17 Year
  Sex: Female

DRUGS (2)
  1. HYLAND^S NIGHTTIME COLD ?N COUGH [Suspect]
     Indication: NASOPHARYNGITIS
     Dosage: 3 TEASPOONS ONCE
  2. HYLAND^S NIGHTTIME COLD ?N COUGH [Suspect]
     Indication: COUGH
     Dosage: 3 TEASPOONS ONCE

REACTIONS (2)
  - Abdominal pain upper [None]
  - Mass [None]
